FAERS Safety Report 19613965 (Version 5)
Quarter: 2021Q4

REPORT INFORMATION
  Report Type: Report from Study
  Country: US (occurrence: US)
  Receive Date: 20210727
  Receipt Date: 20211216
  Transmission Date: 20220303
  Serious: Yes (Death, Hospitalization, Other)
  Sender: FDA-Public Use
  Company Number: US-INSMED, INC.-2021-09038-US

PATIENT
  Sex: Male

DRUGS (3)
  1. ARIKAYCE [Suspect]
     Active Substance: AMIKACIN
     Indication: Idiopathic pulmonary fibrosis
     Dosage: 590 MILLIGRAM, QD
     Route: 055
     Dates: start: 2020, end: 202107
  2. ARIKAYCE [Suspect]
     Active Substance: AMIKACIN
     Dosage: 590 MILLIGRAM, QD
     Route: 055
     Dates: start: 202107, end: 202107
  3. ARIKAYCE [Suspect]
     Active Substance: AMIKACIN
     Dosage: 590 MILLIGRAM, QD
     Route: 055
     Dates: start: 202108, end: 2021

REACTIONS (8)
  - Death [Fatal]
  - Basal cell carcinoma [Not Recovered/Not Resolved]
  - Adenocarcinoma of salivary gland [Not Recovered/Not Resolved]
  - Pneumonia fungal [Unknown]
  - Pneumonia fungal [Not Recovered/Not Resolved]
  - Dyspnoea [Not Recovered/Not Resolved]
  - Off label use [Unknown]
  - Therapy interrupted [Unknown]

NARRATIVE: CASE EVENT DATE: 20210101
